FAERS Safety Report 21264384 (Version 4)
Quarter: 2022Q3

REPORT INFORMATION
  Report Type: Spontaneous
  Country: US (occurrence: US)
  Receive Date: 20220829
  Receipt Date: 20220925
  Transmission Date: 20221027
  Serious: No
  Sender: FDA-Public Use
  Company Number: US-LUPIN PHARMACEUTICALS INC.-2022-10621

PATIENT
  Sex: Male

DRUGS (5)
  1. CEPHALEXIN [Suspect]
     Active Substance: CEPHALEXIN
     Indication: Skin lesion
     Dosage: 500 MG, QD (ONE CAPSULE PER DAY)
     Route: 048
     Dates: start: 2013
  2. CEPHALEXIN [Suspect]
     Active Substance: CEPHALEXIN
     Dosage: 500 MG, QD
     Route: 048
     Dates: start: 20220428
  3. CEPHALEXIN [Suspect]
     Active Substance: CEPHALEXIN
     Dosage: 500 MG, QD (CURRENT BOTTLE) (ONE CAPSULE PER DAY)
     Route: 048
     Dates: start: 20220808
  4. CEPHALEXIN [Suspect]
     Active Substance: CEPHALEXIN
     Dosage: UNK
     Route: 065
  5. CEPHALEXIN [Concomitant]
     Active Substance: CEPHALEXIN
     Indication: Product used for unknown indication
     Dosage: UNK
     Route: 065
     Dates: start: 20220630

REACTIONS (2)
  - Drug ineffective [Unknown]
  - Product odour abnormal [Unknown]
